FAERS Safety Report 8017480-5 (Version None)
Quarter: 2011Q4

REPORT INFORMATION
  Report Type: 
  Country: None (occurrence: None)
  Receive Date: 20111128
  Receipt Date: 20111128
  Transmission Date: 20120403
  Serious: Yes (Hospitalization)
  Sender: FDA-Public Use
  Company Number: None

PATIENT
  Sex: Female
  Weight: 71.6683 kg

DRUGS (1)
  1. LISIN/HCTZ 20-125 [Suspect]
     Indication: HYPERTENSION
     Dosage: ONE TABLET DAILY ORAL
     Route: 048
     Dates: start: 20010101

REACTIONS (4)
  - GLOSSODYNIA [None]
  - SWOLLEN TONGUE [None]
  - SALIVARY HYPERSECRETION [None]
  - DYSKINESIA [None]
